FAERS Safety Report 14856952 (Version 1)
Quarter: 2018Q2

REPORT INFORMATION
  Report Type: Spontaneous
  Country: US (occurrence: US)
  Receive Date: 20180507
  Receipt Date: 20180507
  Transmission Date: 20180711
  Serious: No
  Sender: FDA-Public Use
  Company Number: US-ROCHE-2070186

PATIENT
  Age: 75 Year
  Sex: Male

DRUGS (5)
  1. SULFAMETHOXAZOLE/TRIMETHOPRIM [Concomitant]
     Active Substance: SULFAMETHOXAZOLE\TRIMETHOPRIM
     Route: 065
  2. ESBRIET [Suspect]
     Active Substance: PIRFENIDONE
     Indication: IDIOPATHIC PULMONARY FIBROSIS
     Dosage: 1 TABLET BY MOUTH 3X DAILY FOR 1 WEEK?2 TABS BY MOUTH 3X DAILY FOR 1WEEK?3 TABLETS 3 TIMES DAILY
     Route: 048
     Dates: start: 20171223
  3. PREDNISONE. [Concomitant]
     Active Substance: PREDNISONE
  4. RAMIPRIL. [Concomitant]
     Active Substance: RAMIPRIL
  5. ATORVASTIN [Concomitant]
     Active Substance: ATORVASTATIN

REACTIONS (1)
  - Decreased appetite [Not Recovered/Not Resolved]

NARRATIVE: CASE EVENT DATE: 20180205
